FAERS Safety Report 5252565-8 (Version None)
Quarter: 2007Q1

REPORT INFORMATION
  Report Type: 
  Country: None (occurrence: None)
  Receive Date: 20070227
  Receipt Date: 20070202
  Transmission Date: 20070707
  Serious: Yes (Other)
  Sender: FDA-Public Use
  Company Number: 2007SP002140

PATIENT
  Age: 64 Year
  Sex: Male

DRUGS (1)
  1. DESLORATADINE [Suspect]

REACTIONS (1)
  - ATRIAL FIBRILLATION [None]
